FAERS Safety Report 5372004-6 (Version None)
Quarter: 2007Q2

REPORT INFORMATION
  Report Type: 
  Country: None (occurrence: None)
  Receive Date: 20070627
  Receipt Date: 20070621
  Transmission Date: 20071010
  Serious: Yes (Hospitalization)
  Sender: FDA-Public Use
  Company Number: US-BAYER-200711938BWH

PATIENT
  Age: 62 Year
  Sex: Female
  Weight: 68 kg

DRUGS (1)
  1. NEXAVAR [Suspect]
     Indication: CERVIX CANCER METASTATIC
     Dosage: TOTAL DAILY DOSE: 800 MG  UNIT DOSE: 200 MG
     Route: 048
     Dates: start: 20070522, end: 20070601

REACTIONS (8)
  - DEHYDRATION [None]
  - DIARRHOEA [None]
  - DISORIENTATION [None]
  - DRY SKIN [None]
  - HAEMOGLOBIN DECREASED [None]
  - PARAESTHESIA [None]
  - PLATELET COUNT DECREASED [None]
  - PRURITUS [None]
